FAERS Safety Report 4976231-9 (Version None)
Quarter: 2006Q2

REPORT INFORMATION
  Report Type: 
  Country: None (occurrence: None)
  Receive Date: 20060419
  Receipt Date: 20060407
  Transmission Date: 20061013
  Serious: Yes (Other)
  Sender: FDA-Public Use
  Company Number: US-JNJFOC-20060402048

PATIENT
  Sex: Male
  Weight: 28.12 kg

DRUGS (1)
  1. CONCERTA [Suspect]

REACTIONS (4)
  - SCRATCH [None]
  - TREMOR [None]
  - VOMITING [None]
  - WEIGHT DECREASED [None]
